FAERS Safety Report 4387617-8 (Version None)
Quarter: 2004Q2

REPORT INFORMATION
  Report Type: 
  Country: None (occurrence: None)
  Receive Date: 20040630
  Receipt Date: 20040520
  Transmission Date: 20050107
  Serious: No
  Sender: FDA-Public Use
  Company Number: US-GLAXOSMITHKLINE-A0511577A

PATIENT
  Age: 60 Year
  Weight: 59.1 kg

DRUGS (2)
  1. ADVAIR HFA [Suspect]
     Indication: ASTHMA
     Route: 055
  2. FLOW METER [Concomitant]
     Route: 065

REACTIONS (1)
  - DRUG INEFFECTIVE [None]
